FAERS Safety Report 14778330 (Version 1)
Quarter: 2018Q2

REPORT INFORMATION
  Report Type: Spontaneous
  Country: US (occurrence: US)
  Receive Date: 20180419
  Receipt Date: 20180419
  Transmission Date: 20180711
  Serious: No
  Sender: FDA-Public Use
  Company Number: US-PERRIGO-17US024906

PATIENT
  Age: 79 Year
  Sex: Male
  Weight: 73.47 kg

DRUGS (7)
  1. AVODART [Concomitant]
     Active Substance: DUTASTERIDE
     Indication: PROSTATOMEGALY
     Dosage: UNKNOWN, UNKNOWN
     Route: 065
  2. MELOXICAM. [Concomitant]
     Active Substance: MELOXICAM
     Indication: STENOSIS
     Dosage: UNKNOWN, PRN
     Route: 065
     Dates: start: 2016
  3. CLOBETASOL PROPIONATE RX 0.05% 9F0 [Suspect]
     Active Substance: CLOBETASOL PROPIONATE
     Indication: PSORIASIS
     Dosage: ONE APPLICATION, BID, PRN
     Route: 061
     Dates: start: 2011, end: 20170612
  4. ATORVASTATIN [Concomitant]
     Active Substance: ATORVASTATIN
     Indication: BLOOD CHOLESTEROL ABNORMAL
     Dosage: UNKNOWN, UNKNOWN
     Route: 065
  5. CLOBETASOL PROPIONATE RX 0.05% 9F0 [Suspect]
     Active Substance: CLOBETASOL PROPIONATE
     Dosage: ONE APPLICATION, BID, PRN
     Route: 061
     Dates: start: 20170613, end: 20170620
  6. CLOBETASOL PROPIONATE RX 0.05% 9F0 [Suspect]
     Active Substance: CLOBETASOL PROPIONATE
     Dosage: ONE APPLICATION, BID, PRN
     Route: 061
     Dates: start: 20171009, end: 20171020
  7. FLOMAX [Concomitant]
     Active Substance: TAMSULOSIN HYDROCHLORIDE
     Indication: PROSTATOMEGALY
     Dosage: UNKNOWN, UNKNOWN
     Route: 065

REACTIONS (2)
  - Wrong technique in product usage process [Recovered/Resolved]
  - Application site pain [Recovered/Resolved]

NARRATIVE: CASE EVENT DATE: 201705
